FAERS Safety Report 15468879 (Version 5)
Quarter: 2020Q1

REPORT INFORMATION
  Report Type: Spontaneous
  Country: BR (occurrence: BR)
  Receive Date: 20181005
  Receipt Date: 20200320
  Transmission Date: 20200409
  Serious: Yes (Other)
  Sender: FDA-Public Use
  Company Number: BR-SA-2018SA273505

PATIENT
  Age: 38 Year
  Sex: Male
  Weight: 73.5 kg

DRUGS (24)
  1. THYMOGLOBULINE [Suspect]
     Active Substance: LAPINE T-LYMPHOCYTE IMMUNE GLOBULIN
     Indication: IMMUNOSUPPRESSION
     Dosage: 250 MG, QD
     Route: 042
     Dates: start: 20180924, end: 20180925
  2. ATENOLOL. [Concomitant]
     Active Substance: ATENOLOL
     Dosage: 50 MG, 12/12H
     Route: 048
     Dates: start: 20200205
  3. HEMAX [ERYTHROPOIETIN] [Concomitant]
     Dosage: 4000 U 3X/WEEK
     Route: 058
     Dates: start: 20200205
  4. MYCOPHENOLATE SODIUM [Concomitant]
     Active Substance: MYCOPHENOLATE SODIUM
     Dosage: 360 MG 12/12H
     Route: 048
     Dates: start: 20200205
  5. CEFAZOLINE [CEFAZOLIN] [Concomitant]
     Active Substance: CEFAZOLIN
     Indication: PROPHYLAXIS
     Dosage: 3 G, QD
     Route: 042
     Dates: start: 20180924, end: 20180925
  6. AMLODIPINE [Concomitant]
     Active Substance: AMLODIPINE BESYLATE
     Dosage: 5 MG 12/12H
     Route: 048
     Dates: start: 20200205
  7. DIPYRONE [Concomitant]
     Active Substance: DIPYRONE
     Dosage: 500MG/ML 2ML 1AMP ACM
     Route: 042
     Dates: start: 20200205, end: 20200226
  8. MACRODANTIN [Concomitant]
     Active Substance: NITROFURANTOIN
     Dosage: 100 MG, QD
     Route: 048
     Dates: start: 20200220, end: 20200225
  9. PLASIL [METOCLOPRAMIDE] [Concomitant]
     Indication: VOMITING
     Dosage: 5MG/ML 2ML 1AMP ACM
     Route: 042
     Dates: start: 20200221, end: 20200221
  10. PLASIL [METOCLOPRAMIDE] [Concomitant]
     Dosage: 5 MG/ML
  11. DIMORF [Concomitant]
     Active Substance: MORPHINE SULFATE
     Dosage: 1MG/ML 1 AMP ACM
     Route: 042
     Dates: start: 20200221, end: 20200221
  12. RANITIDINE. [Concomitant]
     Active Substance: RANITIDINE
     Indication: PROPHYLAXIS AGAINST GASTROINTESTINAL ULCER
     Dosage: 100 MG, QD
     Route: 042
     Dates: start: 20180924
  13. PREDNISONE. [Concomitant]
     Active Substance: PREDNISONE
     Dosage: 5 MG, QD
     Route: 048
     Dates: start: 20200205
  14. HYDROCORTISONE. [Concomitant]
     Active Substance: HYDROCORTISONE
     Indication: PREMEDICATION
     Dosage: 300 MG, QD
     Route: 042
     Dates: start: 20180924, end: 20180924
  15. HYDROCORTISONE. [Concomitant]
     Active Substance: HYDROCORTISONE
     Dosage: 100MG 2FAP QD
     Route: 042
     Dates: start: 20200220, end: 20200225
  16. RANITIDINE. [Concomitant]
     Active Substance: RANITIDINE
     Dosage: 150 MG 12/12H
     Route: 048
     Dates: start: 20200205
  17. TACROLIMUS. [Concomitant]
     Active Substance: TACROLIMUS
     Dosage: 5 MG 12/12H
     Route: 048
     Dates: start: 20200205
  18. THYMOGLOBULINE [Suspect]
     Active Substance: LAPINE T-LYMPHOCYTE IMMUNE GLOBULIN
     Dosage: 75 MG, QD
     Route: 042
     Dates: start: 20200220, end: 20200226
  19. SODIUM CHLORIDE. [Concomitant]
     Active Substance: SODIUM CHLORIDE
     Indication: INFUSION
     Dosage: 500 ML, QD
     Route: 042
     Dates: start: 20180924, end: 20180925
  20. FUROSEMIDE. [Concomitant]
     Active Substance: FUROSEMIDE
     Dosage: 40 MG, QD
     Route: 048
     Dates: start: 20200220
  21. METAMIZOLE SODIUM [Concomitant]
     Active Substance: METAMIZOLE SODIUM
     Indication: PREMEDICATION
     Dosage: 1000 MG, QD
     Route: 042
     Dates: start: 20180924, end: 20180924
  22. BACTRIM [Concomitant]
     Active Substance: SULFAMETHOXAZOLE\TRIMETHOPRIM
     Dosage: 400+80MG, QD
     Route: 048
     Dates: start: 20200205
  23. DOXAZOSIN [Concomitant]
     Active Substance: DOXAZOSIN MESYLATE
     Dosage: 4 MG, QD
     Route: 048
     Dates: start: 20200205
  24. IVERMECTIN. [Concomitant]
     Active Substance: IVERMECTIN
     Dosage: 12 MG, QD
     Route: 048
     Dates: start: 20200220, end: 20200221

REACTIONS (9)
  - Haematocrit decreased [Recovered/Resolved]
  - Hypertension [Recovered/Resolved]
  - Nausea [Recovered/Resolved]
  - Vomiting [Recovered/Resolved]
  - Headache [Recovered/Resolved]
  - Tension headache [Recovered/Resolved]
  - Bradycardia [Recovered/Resolved]
  - White blood cell count increased [Recovered/Resolved]
  - Haemoglobin decreased [Recovered/Resolved]

NARRATIVE: CASE EVENT DATE: 20180924
